FAERS Safety Report 17108911 (Version 1)
Quarter: 2019Q4

REPORT INFORMATION
  Report Type: Spontaneous
  Country: US (occurrence: US)
  Receive Date: 20191203
  Receipt Date: 20191203
  Transmission Date: 20200122
  Serious: No
  Sender: FDA-Public Use
  Company Number: NVSC2019US056869

PATIENT
  Sex: Female

DRUGS (1)
  1. KISQALI [Suspect]
     Active Substance: RIBOCICLIB
     Indication: BREAST CANCER FEMALE
     Dosage: 1800 MG (EVERY DAY FOR 21 DAYS, WITHHOLD FOR 7 DAYS, THEN REPEAT CYCLE)
     Route: 048

REACTIONS (1)
  - Hot flush [Not Recovered/Not Resolved]
